FAERS Safety Report 16777114 (Version 1)
Quarter: 2019Q3

REPORT INFORMATION
  Report Type: Spontaneous
  Country: TR (occurrence: TR)
  Receive Date: 20190905
  Receipt Date: 20190905
  Transmission Date: 20191005
  Serious: Yes (Other)
  Sender: FDA-Public Use
  Company Number: TR-PURDUE PHARMA-GBR-2019-0069833

PATIENT
  Age: 19 Year
  Sex: Male

DRUGS (2)
  1. NON-PMN MORPHINE SULFATE [Suspect]
     Active Substance: MORPHINE SULFATE
     Indication: PAIN
     Dosage: UNK ((2 MG, IN A TOTAL VOLUME OF 10 ML OF NACL 0.9%))
     Route: 008
  2. NON-PMN MORPHINE SULFATE [Suspect]
     Active Substance: MORPHINE SULFATE
     Dosage: UNK ((2 MG, IN A TOTAL VOLUME OF 10 ML OF NACL 0.9%))
     Route: 008

REACTIONS (1)
  - Horner^s syndrome [Recovered/Resolved]
